FAERS Safety Report 11663958 (Version 1)
Quarter: 2015Q4

REPORT INFORMATION
  Report Type: Spontaneous
  Country: US (occurrence: None)
  Receive Date: 20151026
  Receipt Date: 20151026
  Transmission Date: 20160304
  Serious: No
  Sender: FDA-Public Use
  Company Number: None

PATIENT
  Age: 54 Year
  Sex: Male

DRUGS (1)
  1. KYNAMRO [Suspect]
     Active Substance: MIPOMERSEN SODIUM
     Indication: PRODUCT USED FOR UNKNOWN INDICATION
     Route: 058
     Dates: start: 20150521, end: 20150825

REACTIONS (5)
  - Injection site erythema [None]
  - Hepatic enzyme increased [None]
  - Injection site swelling [None]
  - Injection site pain [None]
  - Injection site rash [None]

NARRATIVE: CASE EVENT DATE: 20150901
